FAERS Safety Report 24999303 (Version 2)
Quarter: 2025Q2

REPORT INFORMATION
  Report Type: Spontaneous
  Country: US (occurrence: US)
  Receive Date: 20250222
  Receipt Date: 20250515
  Transmission Date: 20250717
  Serious: No
  Sender: SANOFI AVENTIS
  Company Number: US-SA-2025SA044985

PATIENT
  Age: 58 Year
  Sex: Male

DRUGS (1)
  1. DUPIXENT [Suspect]
     Active Substance: DUPILUMAB
     Dosage: 300 MG, QW
     Route: 058
     Dates: start: 202408

REACTIONS (4)
  - Pain [Unknown]
  - Bedridden [Unknown]
  - Loss of personal independence in daily activities [Unknown]
  - Injection site pain [Recovering/Resolving]
